FAERS Safety Report 7659854-8 (Version None)
Quarter: 2011Q3

REPORT INFORMATION
  Report Type: 
  Country: None (occurrence: None)
  Receive Date: 20110805
  Receipt Date: 20110422
  Transmission Date: 20111222
  Serious: Yes (Other)
  Sender: FDA-Public Use
  Company Number: US-ABBOTT-11P-163-0718536-00

PATIENT
  Sex: Male

DRUGS (2)
  1. DEPAKOTE ER [Suspect]
     Indication: CONVULSION
     Route: 048
  2. DEPAKOTE [Suspect]
     Indication: CONVULSION

REACTIONS (2)
  - SOMNOLENCE [None]
  - CONVULSION [None]
